FAERS Safety Report 7806382-2 (Version None)
Quarter: 2011Q4

REPORT INFORMATION
  Report Type: 
  Country: None (occurrence: None)
  Receive Date: 20111011
  Receipt Date: 20110929
  Transmission Date: 20120403
  Serious: Yes (Hospitalization)
  Sender: FDA-Public Use
  Company Number: FR-JNJFOC-20090401860

PATIENT
  Sex: Female

DRUGS (6)
  1. ASPIRIN [Concomitant]
  2. TRAMADOL HCL [Suspect]
     Indication: ARTHRALGIA
     Route: 048
     Dates: start: 20090305, end: 20090307
  3. FIXICAL [Concomitant]
  4. ACTONEL [Concomitant]
  5. FENOFIBRATE [Concomitant]
  6. GUTRON [Concomitant]

REACTIONS (5)
  - NAUSEA [None]
  - CONVULSION [None]
  - VOMITING [None]
  - HYPONATRAEMIA [None]
  - SOMNOLENCE [None]
